FAERS Safety Report 18020036 (Version 4)
Quarter: 2023Q2

REPORT INFORMATION
  Report Type: Spontaneous
  Country: US (occurrence: US)
  Receive Date: 20200714
  Receipt Date: 20230404
  Transmission Date: 20230721
  Serious: Yes (Other)
  Sender: FDA-Public Use
  Company Number: US-GILEAD-2020-0481902

PATIENT
  Age: 49 Year
  Sex: Female
  Weight: 121.54 kg

DRUGS (46)
  1. VIREAD [Suspect]
     Active Substance: TENOFOVIR DISOPROXIL FUMARATE
     Indication: HIV infection
     Dosage: UNK
     Route: 048
     Dates: start: 2004, end: 201606
  2. VIREAD [Suspect]
     Active Substance: TENOFOVIR DISOPROXIL FUMARATE
     Dosage: UNK
     Route: 048
     Dates: start: 200706, end: 2008
  3. VIREAD [Suspect]
     Active Substance: TENOFOVIR DISOPROXIL FUMARATE
     Dosage: UNK
     Route: 048
     Dates: start: 2005
  4. VIREAD [Suspect]
     Active Substance: TENOFOVIR DISOPROXIL FUMARATE
     Dosage: UNK
     Route: 048
     Dates: start: 20100901, end: 20130113
  5. TRUVADA [Suspect]
     Active Substance: EMTRICITABINE\TENOFOVIR DISOPROXIL FUMARATE
     Indication: HIV infection
     Dosage: UNK
     Route: 048
     Dates: start: 200504, end: 2008
  6. TRUVADA [Suspect]
     Active Substance: EMTRICITABINE\TENOFOVIR DISOPROXIL FUMARATE
     Dosage: UNK
     Route: 048
     Dates: start: 2005
  7. ATRIPLA [Suspect]
     Active Substance: EFAVIRENZ\EMTRICITABINE\TENOFOVIR DISOPROXIL FUMARATE
     Indication: HIV infection
     Dosage: UNK
     Route: 048
     Dates: start: 201606, end: 2016
  8. ATRIPLA [Suspect]
     Active Substance: EFAVIRENZ\EMTRICITABINE\TENOFOVIR DISOPROXIL FUMARATE
     Dosage: UNK
     Route: 048
     Dates: start: 2005
  9. ATRIPLA [Suspect]
     Active Substance: EFAVIRENZ\EMTRICITABINE\TENOFOVIR DISOPROXIL FUMARATE
     Dosage: UNK
     Route: 048
     Dates: start: 20130215, end: 201611
  10. BIKTARVY [Concomitant]
     Active Substance: BICTEGRAVIR SODIUM\EMTRICITABINE\TENOFOVIR ALAFENAMIDE FUMARATE
  11. GENVOYA [Concomitant]
     Active Substance: COBICISTAT\ELVITEGRAVIR\EMTRICITABINE\TENOFOVIR ALAFENAMIDE FUMARATE
  12. EPZICOM [Concomitant]
     Active Substance: ABACAVIR SULFATE\LAMIVUDINE
  13. KALETRA [Concomitant]
     Active Substance: LOPINAVIR\RITONAVIR
  14. NORVIR [Concomitant]
     Active Substance: RITONAVIR
  15. PREZISTA [Concomitant]
     Active Substance: DARUNAVIR ETHANOLATE
  16. AMOXICILLIN [Concomitant]
     Active Substance: AMOXICILLIN
  17. ATORVASTATIN [Concomitant]
     Active Substance: ATORVASTATIN
  18. CLOTRIMAZOLE [Concomitant]
     Active Substance: CLOTRIMAZOLE
  19. DORZOLAMIDE [Concomitant]
     Active Substance: DORZOLAMIDE
  20. FLUCONAZOLE [Concomitant]
     Active Substance: FLUCONAZOLE
  21. FUROSEMIDE [Concomitant]
     Active Substance: FUROSEMIDE
  22. GABAPENTIN [Concomitant]
     Active Substance: GABAPENTIN
  23. GLIMEPIRIDE [Concomitant]
     Active Substance: GLIMEPIRIDE
  24. GLIPIZIDE [Concomitant]
     Active Substance: GLIPIZIDE
  25. HUMALOG [Concomitant]
     Active Substance: INSULIN LISPRO
  26. INSULIN NOS [Concomitant]
     Active Substance: INSULIN NOS
  27. JANUVIA [Concomitant]
     Active Substance: SITAGLIPTIN PHOSPHATE
  28. JARDIANCE [Concomitant]
     Active Substance: EMPAGLIFLOZIN
  29. LATANOPROST [Concomitant]
     Active Substance: LATANOPROST
  30. INSULIN LISPRO [Concomitant]
     Active Substance: INSULIN LISPRO
  31. METFORMIN [Concomitant]
     Active Substance: METFORMIN HYDROCHLORIDE
  32. METOCLOPRAMIDE [Concomitant]
     Active Substance: METOCLOPRAMIDE
  33. NEXIUM I.V. [Concomitant]
     Active Substance: ESOMEPRAZOLE SODIUM
  34. NOVOLOG [Concomitant]
     Active Substance: INSULIN ASPART
  35. OMEPRAZOLE [Concomitant]
     Active Substance: OMEPRAZOLE
  36. OXYCODONE [Concomitant]
     Active Substance: OXYCODONE
  37. PRAVASTATIN [Concomitant]
     Active Substance: PRAVASTATIN
  38. PREDNISOLONE [Concomitant]
     Active Substance: PREDNISOLONE
  39. PREMARIN [Concomitant]
     Active Substance: ESTROGENS, CONJUGATED
  40. VICTOZA [Concomitant]
     Active Substance: LIRAGLUTIDE
  41. AMLODIPINE [Concomitant]
     Active Substance: AMLODIPINE BESYLATE
  42. ATENOLOL [Concomitant]
     Active Substance: ATENOLOL
  43. CLONIDINE [Concomitant]
     Active Substance: CLONIDINE
  44. LISINOPRIL [Concomitant]
     Active Substance: LISINOPRIL
  45. NIFEDIPINE [Concomitant]
     Active Substance: NIFEDIPINE
  46. TRAMADOL [Concomitant]
     Active Substance: TRAMADOL

REACTIONS (21)
  - Device related infection [Unknown]
  - Multiple fractures [Not Recovered/Not Resolved]
  - Chronic kidney disease [Not Recovered/Not Resolved]
  - Renal injury [Unknown]
  - Osteonecrosis [Unknown]
  - Renal failure [Unknown]
  - Bone loss [Unknown]
  - Skeletal injury [Unknown]
  - Bone density decreased [Unknown]
  - Anhedonia [Not Recovered/Not Resolved]
  - Emotional distress [Not Recovered/Not Resolved]
  - Anxiety [Not Recovered/Not Resolved]
  - Pain [Not Recovered/Not Resolved]
  - Asthenia [Not Recovered/Not Resolved]
  - Urinary incontinence [Not Recovered/Not Resolved]
  - Fatigue [Not Recovered/Not Resolved]
  - Bone demineralisation [Not Recovered/Not Resolved]
  - Foot fracture [Recovered/Resolved]
  - Gait inability [Not Recovered/Not Resolved]
  - Foot fracture [Not Recovered/Not Resolved]
  - Hypertension [Not Recovered/Not Resolved]

NARRATIVE: CASE EVENT DATE: 20110101
